FAERS Safety Report 17609777 (Version 2)
Quarter: 2020Q2

REPORT INFORMATION
  Report Type: Spontaneous
  Country: FR (occurrence: FR)
  Receive Date: 20200401
  Receipt Date: 20200609
  Transmission Date: 20200713
  Serious: Yes (Other)
  Sender: FDA-Public Use
  Company Number: FR-PFIZER INC-2020132687

PATIENT
  Age: 51 Year
  Sex: Female

DRUGS (17)
  1. MOVICOL [Suspect]
     Active Substance: POLYETHYLENE GLYCOL 3350\POTASSIUM CHLORIDE\SODIUM BICARBONATE\SODIUM CHLORIDE
     Indication: CONSTIPATION
     Dosage: 3 DF, 1X/DAY
     Route: 048
     Dates: start: 20200227, end: 20200306
  2. PARACETAMOL [Concomitant]
     Active Substance: ACETAMINOPHEN
     Indication: PAIN
     Dosage: 500 MG, CYCLIC (EVERY 3 HOUR, IF PAIN)
     Route: 042
     Dates: start: 20200227
  3. METOCLOPRAMIDE. [Concomitant]
     Active Substance: METOCLOPRAMIDE
     Indication: VOMITING
     Dosage: 60 MG, 1X/DAY EVERY 24 HOUR)
     Route: 048
     Dates: start: 20200227
  4. ALPRAZOLAM. [Suspect]
     Active Substance: ALPRAZOLAM
     Indication: ANXIETY
     Dosage: 0.25 MG, SINGLE
     Route: 048
     Dates: start: 20200301, end: 20200301
  5. VANCOMYCIN HYDROCHLORIDE. [Suspect]
     Active Substance: VANCOMYCIN HYDROCHLORIDE
     Indication: ANTIBIOTIC THERAPY
     Dosage: 3250 MG, 1X/DAY (EVERY 24 HOURS)
     Route: 042
     Dates: start: 20200217, end: 20200303
  6. DUPHALAC [Concomitant]
     Active Substance: LACTULOSE
     Indication: CONSTIPATION
     Dosage: 6 DF, 1X/DAY (ORAL POWDER OR FOR RECTAL SOLUTION IN SACHET)
     Route: 048
     Dates: start: 20200229
  7. MIDOSTAURINE [Concomitant]
     Active Substance: MIDOSTAURIN
     Indication: ACUTE LEUKAEMIA
     Dosage: 100 MG, 1X/DAY
     Route: 048
     Dates: start: 20200225
  8. ACICLOVIR [Suspect]
     Active Substance: ACYCLOVIR
     Indication: PROPHYLAXIS
     Dosage: 250 MG, 3X/DAY (EVERY 8 HOURS)
     Route: 042
     Dates: start: 20200222, end: 20200306
  9. AMBISOME [Suspect]
     Active Substance: AMPHOTERICIN B
     Indication: PYREXIA
     Dosage: 200 MG, 1X/DAY (EVERY 24 HOUR) (50 MG POWDER FOR LIPOSOME SUSPENSION FOR INFUSION)
     Route: 042
     Dates: start: 20200219, end: 20200306
  10. FENTANYL. [Suspect]
     Active Substance: FENTANYL
     Indication: PAIN
     Dosage: 200 UG, UNK
     Route: 045
     Dates: start: 20200302, end: 20200306
  11. IDARUBICIN HCL [Suspect]
     Active Substance: IDARUBICIN HYDROCHLORIDE
     Indication: ACUTE LEUKAEMIA
     Dosage: 15.8 MG, UNK
     Route: 042
     Dates: start: 20200214, end: 20200218
  12. CYTARABINE. [Suspect]
     Active Substance: CYTARABINE
     Indication: ACUTE LEUKAEMIA
     Dosage: 352 MG, UNK
     Route: 042
     Dates: start: 20200214, end: 20200220
  13. ONDANSETRON HYDROCHLORIDE. [Suspect]
     Active Substance: ONDANSETRON HYDROCHLORIDE
     Indication: VOMITING
     Dosage: 8 MG, 1X/DAY (EVERY 24 HOURS)
     Route: 042
     Dates: start: 20200227, end: 20200302
  14. METRONIDAZOLE. [Suspect]
     Active Substance: METRONIDAZOLE
     Indication: PROPHYLAXIS
     Dosage: 500 MG, 3X/DAY (EVERY 8 HOUR)
     Route: 042
     Dates: start: 20200217, end: 20200306
  15. FUNGIZONE [Concomitant]
     Active Substance: AMPHOTERICIN B
     Indication: GASTROINTESTINAL CANDIDIASIS
     Dosage: 4 DF, 1X/DAY
     Route: 048
     Dates: start: 20200302
  16. CEFTAZIDIME. [Suspect]
     Active Substance: CEFTAZIDIME
     Indication: ANTIBIOTIC THERAPY
     Dosage: 6 G, 1X/DAY (EVERY 24HOURS)
     Route: 042
     Dates: start: 20200217, end: 20200307
  17. HYDROXYZINE HCL [Suspect]
     Active Substance: HYDROXYZINE HYDROCHLORIDE
     Indication: ANXIETY
     Dosage: 150 MG, UNK
     Route: 048
     Dates: start: 20200302, end: 20200303

REACTIONS (1)
  - Rash maculo-papular [Recovered/Resolved]

NARRATIVE: CASE EVENT DATE: 20200302
